FAERS Safety Report 4449307-2 (Version None)
Quarter: 2004Q3

REPORT INFORMATION
  Report Type: 
  Country: None (occurrence: None)
  Receive Date: 20040909
  Receipt Date: 20040825
  Transmission Date: 20050211
  Serious: Yes (Other)
  Sender: FDA-Public Use
  Company Number: USA030537695

PATIENT
  Age: 38 Year
  Sex: Male
  Weight: 91 kg

DRUGS (6)
  1. PROZAC [Suspect]
     Indication: DEPRESSION
     Dosage: 20 MG/DAY
     Dates: start: 19890101, end: 20010101
  2. PROZAC [Suspect]
     Indication: PANIC DISORDER
     Dosage: 20 MG/DAY
     Dates: start: 19890101, end: 20010101
  3. XANAX [Concomitant]
  4. CALAN XR (VERAPAMIL HYDROCHLORIDE) [Concomitant]
  5. PAXIL [Concomitant]
  6. ELAVIL [Concomitant]

REACTIONS (15)
  - ASTHMA [None]
  - CHEST PAIN [None]
  - CHOLELITHIASIS [None]
  - CONSTIPATION [None]
  - COUGH [None]
  - CYST [None]
  - DRUG INEFFECTIVE [None]
  - HYPERHIDROSIS [None]
  - INSOMNIA [None]
  - NERVOUSNESS [None]
  - PHARMACEUTICAL PRODUCT COMPLAINT [None]
  - RENAL CYST [None]
  - RENAL DISORDER [None]
  - TACHYCARDIA [None]
  - UNEXPECTED THERAPEUTIC DRUG EFFECT [None]
